FAERS Safety Report 16727053 (Version 2)
Quarter: 2019Q3

REPORT INFORMATION
  Report Type: Spontaneous
  Country: US (occurrence: US)
  Receive Date: 20190821
  Receipt Date: 20190830
  Transmission Date: 20191005
  Serious: Yes (Other)
  Sender: FDA-Public Use
  Company Number: PHEH2019US034280

PATIENT
  Sex: Female

DRUGS (2)
  1. DUREZOL [Suspect]
     Active Substance: DIFLUPREDNATE
     Indication: PRODUCT USED FOR UNKNOWN INDICATION
     Dosage: 1 GTT, QD
     Route: 047
     Dates: start: 2011
  2. PRED FORTE [Suspect]
     Active Substance: PREDNISOLONE ACETATE
     Indication: CORNEAL DISORDER
     Route: 065

REACTIONS (10)
  - Scleritis [Not Recovered/Not Resolved]
  - Iritis [Unknown]
  - Photophobia [Unknown]
  - Ocular hyperaemia [Unknown]
  - Iridocyclitis [Not Recovered/Not Resolved]
  - Vision blurred [Unknown]
  - Eye pain [Unknown]
  - Corneal disorder [Unknown]
  - Eye inflammation [Unknown]
  - Corneal dystrophy [Not Recovered/Not Resolved]
